FAERS Safety Report 4806344-3 (Version None)
Quarter: 2005Q4

REPORT INFORMATION
  Report Type: 
  Country: None (occurrence: None)
  Receive Date: 20051019
  Receipt Date: 20050930
  Transmission Date: 20060501
  Serious: Yes (Hospitalization, Other)
  Sender: FDA-Public Use
  Company Number: USA0510109686

PATIENT
  Age: 74 Year
  Sex: Female

DRUGS (1)
  1. EVISTA [Suspect]
     Indication: OSTEOPOROSIS
     Dates: start: 20010101, end: 20050729

REACTIONS (5)
  - ABDOMINAL PAIN UPPER [None]
  - PANCREATECTOMY [None]
  - PANCREATIC DISORDER [None]
  - PRECANCEROUS CELLS PRESENT [None]
  - PROCEDURAL PAIN [None]
